FAERS Safety Report 5942183-8 (Version None)
Quarter: 2008Q4

REPORT INFORMATION
  Report Type: 
  Country: None (occurrence: None)
  Receive Date: 20081031
  Receipt Date: 20081016
  Transmission Date: 20090506
  Serious: Yes (Other)
  Sender: FDA-Public Use
  Company Number: SPV1-2008-02231

PATIENT
  Age: 12 Year
  Sex: Male
  Weight: 47.2 kg

DRUGS (1)
  1. VYVANSE [Suspect]
     Indication: ATTENTION DEFICIT/HYPERACTIVITY DISORDER
     Dosage: 30 MG, 1X/DAY;QD, ORAL
     Route: 048
     Dates: start: 20070101

REACTIONS (5)
  - CHEST PAIN [None]
  - HALLUCINATION [None]
  - INAPPROPRIATE AFFECT [None]
  - MUSCLE TWITCHING [None]
  - PRESYNCOPE [None]
